FAERS Safety Report 6024303-2 (Version None)
Quarter: 2008Q4

REPORT INFORMATION
  Report Type: 
  Country: None (occurrence: None)
  Receive Date: 20081231
  Receipt Date: 20081219
  Transmission Date: 20090506
  Serious: Yes (Other)
  Sender: FDA-Public Use
  Company Number: DE-PFIZER INC-2008157233

PATIENT

DRUGS (1)
  1. DEPO-CLINOVIR [Suspect]
     Indication: CONTRACEPTION
     Dosage: UNK
     Route: 030
     Dates: start: 20060101

REACTIONS (2)
  - ENDOMETRIAL HYPERPLASIA [None]
  - GENITAL HAEMORRHAGE [None]
